FAERS Safety Report 13073194 (Version 1)
Quarter: 2016Q4

REPORT INFORMATION
  Report Type: Spontaneous
  Country: US (occurrence: US)
  Receive Date: 20161229
  Receipt Date: 20161229
  Transmission Date: 20170207
  Serious: Yes (Hospitalization)
  Sender: FDA-Public Use
  Company Number: US-TEVA-723738USA

PATIENT
  Sex: Female

DRUGS (1)
  1. PREDNISONE. [Suspect]
     Active Substance: PREDNISONE
     Route: 065

REACTIONS (9)
  - Pyrexia [Unknown]
  - Drug ineffective [Unknown]
  - Influenza [Unknown]
  - Hyperhidrosis [Unknown]
  - Infection [Unknown]
  - Motor dysfunction [Unknown]
  - Decreased appetite [Unknown]
  - Oxygen saturation decreased [Unknown]
  - Asthma [Unknown]
